FAERS Safety Report 14781007 (Version 3)
Quarter: 2018Q3

REPORT INFORMATION
  Report Type: Spontaneous
  Country: US (occurrence: US)
  Receive Date: 20180419
  Receipt Date: 20180719
  Transmission Date: 20181010
  Serious: Yes (Hospitalization, Other)
  Sender: FDA-Public Use
  Company Number: US-GLAXOSMITHKLINE-US2018GSK067463

PATIENT
  Age: 66 Year
  Sex: Female

DRUGS (17)
  1. VITAMIN D [Concomitant]
     Active Substance: CHOLECALCIFEROL
  2. REGLAN [Concomitant]
     Active Substance: METOCLOPRAMIDE HYDROCHLORIDE
  3. CIPRO [Concomitant]
     Active Substance: CIPROFLOXACIN HYDROCHLORIDE
  4. TANZEUM [Suspect]
     Active Substance: ALBIGLUTIDE
     Dosage: 1 DF, WE
     Route: 058
  5. METFORMIN [Concomitant]
     Active Substance: METFORMIN HYDROCHLORIDE
  6. LASIX [Concomitant]
     Active Substance: FUROSEMIDE
  7. LYRICA [Concomitant]
     Active Substance: PREGABALIN
  8. ASPIRIN LOW DOSE [Concomitant]
     Active Substance: ASPIRIN
  9. VITAMIN B COMPLEX [Concomitant]
     Active Substance: CYANOCOBALAMIN\DEXPANTHENOL\NIACINAMIDE\PYRIDOXINE HYDROCHLORIDE\RIBOFLAVIN 5^-PHOSPHATE SODIUM\THIAMINE HYDROCHLORIDE\VITAMIN B COMPLEX
  10. LOSARTAN. [Concomitant]
     Active Substance: LOSARTAN
  11. TYLENOL ARTHRITIS PAIN [Concomitant]
     Active Substance: ACETAMINOPHEN
     Indication: PAIN
  12. GLUCOPHAGE [Concomitant]
     Active Substance: METFORMIN HYDROCHLORIDE
  13. FLAGYL [Concomitant]
     Active Substance: METRONIDAZOLE\METRONIDAZOLE HYDROCHLORIDE
  14. TANZEUM [Suspect]
     Active Substance: ALBIGLUTIDE
     Indication: PRODUCT USED FOR UNKNOWN INDICATION
     Dosage: 1 DF, WE
     Route: 058
  15. LOPRESSOR [Concomitant]
     Active Substance: METOPROLOL TARTRATE
  16. METOPROLOL. [Concomitant]
     Active Substance: METOPROLOL
  17. COZAAR [Concomitant]
     Active Substance: LOSARTAN POTASSIUM

REACTIONS (33)
  - Diarrhoea [Recovered/Resolved]
  - Flatulence [Unknown]
  - Dizziness postural [Unknown]
  - Loss of consciousness [Unknown]
  - Abdominal pain [Recovered/Resolved]
  - Decreased appetite [Unknown]
  - Diabetic complication [Unknown]
  - Oedema [Unknown]
  - Abdominal distension [Unknown]
  - Drug hypersensitivity [Unknown]
  - Abdominal discomfort [Unknown]
  - Peripheral venous disease [Unknown]
  - Renal failure [Unknown]
  - Vomiting [Recovered/Resolved]
  - Pruritus [Unknown]
  - Arthralgia [Unknown]
  - Ill-defined disorder [Unknown]
  - Fluid overload [Unknown]
  - Nausea [Recovered/Resolved]
  - Dehydration [Unknown]
  - Hypotension [Unknown]
  - Peripheral swelling [Unknown]
  - Product availability issue [Unknown]
  - Headache [Unknown]
  - Eructation [Unknown]
  - Diverticulum intestinal [Unknown]
  - Essential hypertension [Unknown]
  - Pain in extremity [Unknown]
  - Weight decreased [Unknown]
  - Oedema peripheral [Unknown]
  - Weight increased [Unknown]
  - Dyspepsia [Unknown]
  - Joint swelling [Unknown]

NARRATIVE: CASE EVENT DATE: 20180102
